FAERS Safety Report 16615574 (Version 1)
Quarter: 2019Q3

REPORT INFORMATION
  Report Type: Spontaneous
  Country: US (occurrence: US)
  Receive Date: 20190723
  Receipt Date: 20190723
  Transmission Date: 20191004
  Serious: Yes (Hospitalization, Other)
  Sender: FDA-Public Use
  Company Number: US-ROCHE-2360493

PATIENT
  Age: 87 Year
  Sex: Female

DRUGS (1)
  1. ACTEMRA [Suspect]
     Active Substance: TOCILIZUMAB
     Indication: TEMPORAL ARTERITIS
     Dosage: 162MG/0.9ML , WEEKLY
     Route: 058
     Dates: start: 20180801, end: 20190531

REACTIONS (1)
  - Intestinal haemorrhage [Unknown]

NARRATIVE: CASE EVENT DATE: 20190531
